FAERS Safety Report 10063695 (Version 1)
Quarter: 2014Q2

REPORT INFORMATION
  Report Type: Spontaneous
  Country: JP (occurrence: JP)
  Receive Date: 20140407
  Receipt Date: 20140407
  Transmission Date: 20141212
  Serious: No
  Sender: FDA-Public Use
  Company Number: PHHY2013JP155962

PATIENT
  Age: 88 Year
  Sex: Male

DRUGS (7)
  1. TASIGNA [Suspect]
     Indication: CHRONIC MYELOID LEUKAEMIA
     Dates: start: 201212
  2. SOCWARL [Concomitant]
  3. OLMETEC [Concomitant]
  4. GLIMEPIRIDE [Concomitant]
  5. CONIPROS [Concomitant]
  6. ANISTO [Concomitant]
  7. FUROSEMIDE [Concomitant]

REACTIONS (9)
  - Pleural effusion [Unknown]
  - Swelling [Unknown]
  - White blood cell count decreased [Unknown]
  - Pruritus [Unknown]
  - Dyspnoea [Unknown]
  - Anaemia [Unknown]
  - Nausea [Unknown]
  - Rash [Unknown]
  - Platelet disorder [Unknown]
